FAERS Safety Report 5995577-9 (Version None)
Quarter: 2008Q4

REPORT INFORMATION
  Report Type: 
  Country: None (occurrence: None)
  Receive Date: 20081212
  Receipt Date: 20081201
  Transmission Date: 20090506
  Serious: Yes (Hospitalization)
  Sender: FDA-Public Use
  Company Number: JP-ROCHE-491160

PATIENT
  Age: 93 Week
  Sex: Male

DRUGS (1)
  1. TAMIFLU [Suspect]
     Indication: INFLUENZA
     Dosage: FORM REPORTED AS DRY SYRUP
     Route: 048
     Dates: start: 20070324, end: 20070325

REACTIONS (1)
  - ABNORMAL BEHAVIOUR [None]
